FAERS Safety Report 24972327 (Version 1)
Quarter: 2025Q1

REPORT INFORMATION
  Report Type: Report from Study
  Country: KR (occurrence: KR)
  Receive Date: 20250214
  Receipt Date: 20250214
  Transmission Date: 20250409
  Serious: Yes (Death)
  Sender: ABBVIE
  Company Number: KR-PFIZER INC-PV202500017030

PATIENT
  Age: 46 Year
  Sex: Female
  Weight: 65 kg

DRUGS (15)
  1. AVIBACTAM SODIUM\CEFTAZIDIME [Suspect]
     Active Substance: AVIBACTAM SODIUM\CEFTAZIDIME
     Indication: Abdominal infection
     Route: 042
     Dates: start: 20250110, end: 20250204
  2. PROGRAF [Concomitant]
     Active Substance: TACROLIMUS
     Indication: Prophylaxis
     Route: 048
     Dates: start: 20250105
  3. GAVIR [Concomitant]
     Indication: Prophylaxis
     Route: 042
     Dates: start: 20250110
  4. LASIX [Concomitant]
     Active Substance: FUROSEMIDE
     Indication: Prophylaxis
     Route: 042
     Dates: start: 202501
  5. SULFAMETHOXAZOLE\TRIMETHOPRIM [Concomitant]
     Active Substance: SULFAMETHOXAZOLE\TRIMETHOPRIM
     Indication: Infection prophylaxis
     Route: 048
     Dates: start: 20250105
  6. SOLONDO [Concomitant]
     Indication: Infection prophylaxis
     Route: 048
     Dates: start: 20250108
  7. CALDOLOR [Concomitant]
     Active Substance: IBUPROFEN
     Indication: Infection
     Route: 042
     Dates: start: 202501
  8. Tacrobell sr [Concomitant]
     Indication: Prophylaxis
     Route: 048
     Dates: start: 20250120, end: 20250130
  9. MYCOPHENOLATE MOFETIL [Concomitant]
     Active Substance: MYCOPHENOLATE MOFETIL
     Indication: Prophylaxis
     Route: 048
     Dates: start: 20250114
  10. ITRA [Concomitant]
     Indication: Infection prophylaxis
     Route: 048
     Dates: start: 20250105
  11. TACROLIMUS [Concomitant]
     Active Substance: TACROLIMUS
     Indication: Prophylaxis
     Route: 048
     Dates: start: 20250117, end: 20250122
  12. TACROLIMUS [Concomitant]
     Active Substance: TACROLIMUS
     Indication: Prophylaxis
     Route: 048
     Dates: start: 20250117, end: 20250119
  13. AMBISOME [Concomitant]
     Active Substance: AMPHOTERICIN B
     Indication: Infection
     Route: 042
     Dates: start: 20250114
  14. HERBALS [Concomitant]
     Active Substance: HERBALS
     Indication: Gastrointestinal procedural complication
     Route: 048
     Dates: start: 202501
  15. PROPACETAMOL HYDROCHLORIDE [Concomitant]
     Active Substance: PROPACETAMOL HYDROCHLORIDE
     Indication: Infection
     Route: 042
     Dates: start: 202501

REACTIONS (1)
  - Haemorrhage intracranial [Fatal]

NARRATIVE: CASE EVENT DATE: 20250124
